FAERS Safety Report 9281099 (Version 1)
Quarter: 2013Q2

REPORT INFORMATION
  Report Type: Spontaneous
  Country: US (occurrence: None)
  Receive Date: 20130508
  Receipt Date: 20130508
  Transmission Date: 20140414
  Serious: Yes (Other)
  Sender: FDA-Public Use
  Company Number: None

PATIENT
  Sex: 0
  Weight: 148.33 kg

DRUGS (25)
  1. ALEMTUZUMAB [Suspect]
     Indication: MULTIPLE SCLEROSIS
     Dosage: D1 12 MG QD I/V (041)
     Route: 042
     Dates: start: 20130107, end: 20130111
  2. SOLUMEDROL [Suspect]
     Dosage: 12 MG QD I/V(041), EVERY THREE DAYS
     Route: 042
     Dates: start: 20130107, end: 20130109
  3. ACYCLOVIR [Concomitant]
  4. CYANOCOBALAMIN [Concomitant]
  5. CARBAMAZEPINE [Concomitant]
  6. CYMBALTA [Concomitant]
  7. DIAZEPAM [Concomitant]
  8. GABAPENTIN [Concomitant]
  9. MELOXICAM [Concomitant]
  10. METHYLPHENIDATE [Concomitant]
  11. ODANSETRAN [Concomitant]
  12. TESTOSTERONE CYPIONATE [Concomitant]
  13. TOPIRAMATE [Concomitant]
  14. TRA,ADP; [Concomitant]
  15. ZOLPIDEM [Concomitant]
  16. ASA [Concomitant]
  17. CAL CITRATE [Concomitant]
  18. FURESEMIDE [Concomitant]
  19. IBUPROFEN [Concomitant]
  20. MVI [Concomitant]
  21. PRAMIPEXOLE [Concomitant]
  22. PODRIN [Concomitant]
  23. PROMETHAZINE [Concomitant]
  24. SIMVASTATIN [Concomitant]
  25. TAMULOSIN [Concomitant]

REACTIONS (1)
  - Dyspnoea [None]
